FAERS Safety Report 7582077-8 (Version None)
Quarter: 2011Q2

REPORT INFORMATION
  Report Type: 
  Country: None (occurrence: None)
  Receive Date: 20110630
  Receipt Date: 20110621
  Transmission Date: 20111010
  Serious: No
  Sender: FDA-Public Use
  Company Number: US-BIOGENIDEC-2011BI022798

PATIENT
  Age: 49 Year
  Sex: Female

DRUGS (4)
  1. TYSABRI [Suspect]
     Indication: MULTIPLE SCLEROSIS
     Route: 042
     Dates: start: 20100310
  2. AVONEX [Concomitant]
     Indication: MULTIPLE SCLEROSIS
     Route: 030
     Dates: end: 20050207
  3. TYSABRI [Suspect]
     Route: 042
     Dates: start: 20050205, end: 20050207
  4. TYSABRI [Suspect]
     Route: 042
     Dates: start: 20080114, end: 20090826

REACTIONS (2)
  - ABDOMINAL DISCOMFORT [None]
  - ASTHENIA [None]
